FAERS Safety Report 6890230-1 (Version None)
Quarter: 2010Q3

REPORT INFORMATION
  Report Type: 
  Country: None (occurrence: None)
  Receive Date: 20100730
  Receipt Date: 20080909
  Transmission Date: 20110219
  Serious: No
  Sender: FDA-Public Use
  Company Number: US-PFIZER INC-2008076555

PATIENT
  Age: 75 Year
  Sex: Female
  Weight: 56.818 kg

DRUGS (1)
  1. LIPITOR [Suspect]
     Indication: EXTRASYSTOLES

REACTIONS (3)
  - ASTHENIA [None]
  - FATIGUE [None]
  - HYPOKINESIA [None]
